FAERS Safety Report 7558972-2 (Version None)
Quarter: 2011Q2

REPORT INFORMATION
  Report Type: 
  Country: None (occurrence: None)
  Receive Date: 20110621
  Receipt Date: 20110614
  Transmission Date: 20111010
  Serious: Yes (Other)
  Sender: FDA-Public Use
  Company Number: NL-AMGEN-NLDSP2011030800

PATIENT
  Age: 34 Year
  Sex: Female

DRUGS (9)
  1. ENBREL [Suspect]
     Dosage: 50 MG, WEEKLY
  2. DICLOFENAC SODIUM [Concomitant]
     Dosage: UNK
  3. METHOTREXATE SODIUM [Concomitant]
     Dosage: UNK
  4. PLAQUENIL [Concomitant]
     Dosage: UNK
  5. CALCICHEW [Concomitant]
     Dosage: UNK
  6. OMEPRAZOLE [Concomitant]
     Dosage: UNK
  7. ENBREL [Suspect]
     Indication: RHEUMATOID ARTHRITIS
     Dosage: 25 MG, WEEKLY
  8. FOLIC ACID [Concomitant]
     Dosage: UNK
  9. PREDNISOLONE [Concomitant]
     Dosage: UNK

REACTIONS (1)
  - WRIST SURGERY [None]
